FAERS Safety Report 16401966 (Version 1)
Quarter: 2019Q2

REPORT INFORMATION
  Report Type: Spontaneous
  Country: US (occurrence: US)
  Receive Date: 20190607
  Receipt Date: 20190607
  Transmission Date: 20190711
  Serious: Yes (Hospitalization, Other)
  Sender: FDA-Public Use
  Company Number: US-AMGEN-USASP2019087815

PATIENT
  Age: 56 Year
  Sex: Female

DRUGS (1)
  1. KYPROLIS [Suspect]
     Active Substance: CARFILZOMIB
     Indication: PRODUCT USED FOR UNKNOWN INDICATION
     Dosage: UNK
     Route: 065

REACTIONS (5)
  - Wound haemorrhage [Unknown]
  - Renal impairment [Unknown]
  - Mouth haemorrhage [Unknown]
  - Stomatitis [Unknown]
  - Limb injury [Unknown]

NARRATIVE: CASE EVENT DATE: 20190516
